FAERS Safety Report 5522431-9 (Version None)
Quarter: 2007Q4

REPORT INFORMATION
  Report Type: 
  Country: None (occurrence: None)
  Receive Date: 20071120
  Receipt Date: 20071114
  Transmission Date: 20080405
  Serious: Yes (Hospitalization)
  Sender: FDA-Public Use
  Company Number: US-WYE-H01300007

PATIENT
  Sex: Female
  Weight: 79 kg

DRUGS (9)
  1. RAPAMUNE [Suspect]
     Indication: PROPHYLAXIS AGAINST TRANSPLANT REJECTION
     Dosage: ALTERNATING DAILY DOSE OF 1 MG/2 MG
     Route: 048
     Dates: start: 20040330
  2. PREDNISONE TAB [Concomitant]
     Route: 048
  3. ACETYLSALICYLIC ACID SRT [Concomitant]
     Route: 048
  4. PREVACID [Concomitant]
     Route: 048
  5. CALTRATE 600 + VITAMIN D [Concomitant]
     Route: 048
  6. CELLCEPT [Concomitant]
     Route: 048
     Dates: end: 20071109
  7. CELLCEPT [Concomitant]
     Dosage: ON HOLD
     Dates: start: 20071110, end: 20071112
  8. CELLCEPT [Concomitant]
     Route: 048
     Dates: start: 20071113
  9. LASIX [Concomitant]
     Dosage: 20 MG  TWO TIMES A DAY AS NEEDED
     Route: 048

REACTIONS (1)
  - GASTROENTERITIS [None]
